FAERS Safety Report 5573541-1 (Version None)
Quarter: 2007Q4

REPORT INFORMATION
  Report Type: 
  Country: None (occurrence: None)
  Receive Date: 20071226
  Receipt Date: 20071214
  Transmission Date: 20080405
  Serious: Yes (Hospitalization, Other)
  Sender: FDA-Public Use
  Company Number: GB-JNJFOC-20071204287

PATIENT
  Sex: Male
  Weight: 99 kg

DRUGS (11)
  1. REMICADE [Suspect]
     Indication: RHEUMATOID ARTHRITIS
  2. METHOTREXATE [Concomitant]
  3. PRENISOLONE [Concomitant]
  4. BENDROFLUAZIDE [Concomitant]
  5. DIGOXIN [Concomitant]
  6. FOLIC ACID [Concomitant]
  7. OMEPRAZOLE [Concomitant]
  8. IBUPROFEN [Concomitant]
  9. SENNA [Concomitant]
  10. TEMAZEPAM [Concomitant]
  11. TRANSTEC [Concomitant]

REACTIONS (1)
  - HIP FRACTURE [None]
